FAERS Safety Report 24367824 (Version 1)
Quarter: 2024Q3

REPORT INFORMATION
  Report Type: Spontaneous
  Country: BE (occurrence: BE)
  Receive Date: 20240926
  Receipt Date: 20240926
  Transmission Date: 20241016
  Serious: Yes (Death, Hospitalization, Other)
  Sender: PFIZER
  Company Number: BE-PFIZER INC-PV202400124843

PATIENT
  Age: 28 Year
  Sex: Female

DRUGS (2)
  1. ETHINYL ESTRADIOL\LEVONORGESTREL [Suspect]
     Active Substance: ETHINYL ESTRADIOL\LEVONORGESTREL
     Indication: Contraception
     Dosage: UNK
     Route: 048
  2. INDOMETHACIN [Concomitant]
     Active Substance: INDOMETHACIN
     Indication: Systemic lupus erythematosus
     Dosage: UNK

REACTIONS (2)
  - Budd-Chiari syndrome [Fatal]
  - Hepatic failure [Fatal]
